FAERS Safety Report 20509037 (Version 2)
Quarter: 2022Q1

REPORT INFORMATION
  Report Type: Report from Study
  Country: FR (occurrence: FR)
  Receive Date: 20220223
  Receipt Date: 20220303
  Transmission Date: 20220423
  Serious: Yes (Other)
  Sender: FDA-Public Use
  Company Number: FR-GILEAD-2022-0570913

PATIENT
  Sex: Female
  Weight: 43 kg

DRUGS (1)
  1. SACITUZUMAB GOVITECAN [Suspect]
     Active Substance: SACITUZUMAB GOVITECAN
     Indication: Triple negative breast cancer
     Dosage: D1 23-NOV-2021. D8 30-NOV-2021
     Route: 042
     Dates: start: 20211123, end: 20211130

REACTIONS (1)
  - Disease progression [Unknown]
